FAERS Safety Report 9632813 (Version 1)
Quarter: 2013Q4

REPORT INFORMATION
  Report Type: Spontaneous
  Country: US (occurrence: US)
  Receive Date: 20131018
  Receipt Date: 20131018
  Transmission Date: 20140711
  Serious: Yes (Death, Other)
  Sender: FDA-Public Use
  Company Number: US-TEVA-439014USA

PATIENT
  Age: 77 Year
  Sex: Male

DRUGS (2)
  1. WARFARIN [Suspect]
  2. ELIQUIS (APIXABAN) [Suspect]
     Dosage: 10 MILLIGRAM DAILY;

REACTIONS (2)
  - Embolism [Unknown]
  - Death [Fatal]
